FAERS Safety Report 5576350-2 (Version None)
Quarter: 2007Q4

REPORT INFORMATION
  Report Type: 
  Country: None (occurrence: None)
  Receive Date: 20071228
  Receipt Date: 20071218
  Transmission Date: 20080405
  Serious: Yes (Hospitalization)
  Sender: FDA-Public Use
  Company Number: FR-ALLERGAN-0714200US

PATIENT
  Sex: Male

DRUGS (8)
  1. TROSPIUM CHLORIDE [Suspect]
     Indication: URINARY TRACT DISORDER
     Dosage: 20 MG, BID
     Route: 048
  2. SKENAN [Suspect]
     Indication: PAIN
     Dosage: 30 MG, UNK
     Route: 048
     Dates: start: 20070828, end: 20070831
  3. DISCOTRINE [Concomitant]
     Dosage: 10 UG, QD
  4. RISPERDAL [Concomitant]
     Dosage: 1 MG, QPM
  5. IMOVANE [Concomitant]
     Dosage: 1 MG, QPM
  6. APROVEL [Concomitant]
     Dosage: 150 MG, UNK
  7. HYPERIUM [Concomitant]
     Dosage: 1 MG, UNK
  8. FORLAX [Concomitant]

REACTIONS (16)
  - ASPARTATE AMINOTRANSFERASE INCREASED [None]
  - BETA 2 MICROGLOBULIN INCREASED [None]
  - BLOOD CREATINE PHOSPHOKINASE INCREASED [None]
  - BLOOD CREATININE INCREASED [None]
  - BLOOD UREA INCREASED [None]
  - C-REACTIVE PROTEIN INCREASED [None]
  - CEREBROVASCULAR ACCIDENT [None]
  - FALL [None]
  - HYPERKALAEMIA [None]
  - LEUKOCYTOSIS [None]
  - MIOSIS [None]
  - OVERDOSE [None]
  - PLASMACYTOSIS [None]
  - PROTEINURIA [None]
  - RHABDOMYOLYSIS [None]
  - URINARY RETENTION [None]
